FAERS Safety Report 6247151-7 (Version None)
Quarter: 2009Q2

REPORT INFORMATION
  Report Type: 
  Country: None (occurrence: None)
  Receive Date: 20090624
  Receipt Date: 20090624
  Transmission Date: 20091009
  Serious: Yes (Life-Threatening)
  Sender: FDA-Public Use
  Company Number: None

PATIENT
  Age: 57 Year
  Sex: Female
  Weight: 77 kg

DRUGS (15)
  1. MORPHINE [Suspect]
     Indication: PAIN
     Dosage: 0/3/10 PCA
     Dates: start: 20090324, end: 20090325
  2. PERCOCET [Suspect]
     Dosage: 2+1 TAB PO Q4 PRN
     Route: 048
     Dates: start: 20090325
  3. HEP [Concomitant]
  4. APAP TAB [Concomitant]
  5. CYCLOBENZAPRINE [Concomitant]
  6. DEXAMETHASONE [Concomitant]
  7. DULOXETINE HYDROCHLORIDE [Concomitant]
  8. FENTANYL [Concomitant]
  9. KETOROLAC TROMETHAMINE [Concomitant]
  10. LEVOTHYROXINE SODIUM [Concomitant]
  11. EVISTA [Concomitant]
  12. ESOMEPRAZOLE MAGNESIUM [Concomitant]
  13. PREGABALIN [Concomitant]
  14. SENNA [Concomitant]
  15. VANCOMYCIN HCL [Concomitant]

REACTIONS (4)
  - AGITATION [None]
  - MULTIPLE SCLEROSIS [None]
  - MYDRIASIS [None]
  - OXYGEN SATURATION DECREASED [None]
